FAERS Safety Report 4351559-4 (Version None)
Quarter: 2004Q2

REPORT INFORMATION
  Report Type: 
  Country: None (occurrence: None)
  Receive Date: 20040503
  Receipt Date: 20040307
  Transmission Date: 20050107
  Serious: Yes (Death, Hospitalization)
  Sender: FDA-Public Use
  Company Number: US-MERCK-0403USA00719

PATIENT
  Age: 77 Year
  Sex: Female

DRUGS (12)
  1. SYNTHROID [Concomitant]
     Route: 065
  2. PRINIVIL [Concomitant]
     Route: 048
  3. TOPROL-XL [Concomitant]
     Route: 065
  4. NITROFUR MAC [Concomitant]
     Route: 065
  5. DITROPAN [Concomitant]
     Route: 065
  6. AMITRIPTYLINE HYDROCHLORIDE [Concomitant]
     Route: 065
  7. ASPIRIN [Concomitant]
     Route: 065
  8. LIPITOR [Concomitant]
     Route: 065
     Dates: end: 20011101
  9. LIPITOR [Concomitant]
     Route: 065
     Dates: start: 20011101, end: 20031112
  10. LIPITOR [Concomitant]
     Route: 065
     Dates: start: 20031101, end: 20040106
  11. OS-CAL [Concomitant]
     Route: 065
  12. ZETIA [Suspect]
     Indication: LOW DENSITY LIPOPROTEIN INCREASED
     Route: 048
     Dates: start: 20030902, end: 20040106

REACTIONS (3)
  - ANTINUCLEAR ANTIBODY POSITIVE [None]
  - HEPATIC FAILURE [None]
  - HEPATIC NECROSIS [None]
